FAERS Safety Report 6418997-7 (Version None)
Quarter: 2009Q4

REPORT INFORMATION
  Report Type: 
  Country: None (occurrence: None)
  Receive Date: 20091028
  Receipt Date: 20091028
  Transmission Date: 20100525
  Serious: Yes (Hospitalization)
  Sender: FDA-Public Use
  Company Number: None

PATIENT
  Age: 77 Year
  Sex: Male
  Weight: 89.8 kg

DRUGS (2)
  1. TARCEVA [Suspect]
     Indication: NON-SMALL CELL LUNG CANCER
     Dosage: 100MG, QD, PO
     Route: 048
  2. ZOCOR [Concomitant]

REACTIONS (6)
  - ABDOMINAL PAIN LOWER [None]
  - BLOOD AMYLASE INCREASED [None]
  - CHOLECYSTITIS [None]
  - DRUG INTERACTION [None]
  - LIPASE INCREASED [None]
  - PANCREATITIS [None]
